FAERS Safety Report 7587342-6 (Version None)
Quarter: 2011Q3

REPORT INFORMATION
  Report Type: 
  Country: None (occurrence: None)
  Receive Date: 20110701
  Receipt Date: 20110622
  Transmission Date: 20111222
  Serious: Yes (Other)
  Sender: FDA-Public Use
  Company Number: US-AMGEN-USASP2011032608

PATIENT
  Age: 54 Year
  Sex: Female

DRUGS (1)
  1. ENBREL [Suspect]
     Indication: PSORIASIS
     Dosage: 50 MG, 2 TIMES/WK
     Dates: start: 20110614

REACTIONS (6)
  - HYPERTENSION [None]
  - DIABETES MELLITUS [None]
  - ABDOMINAL PAIN UPPER [None]
  - ASTHENIA [None]
  - HEADACHE [None]
  - HYPOGLYCAEMIA [None]
